FAERS Safety Report 10659277 (Version 1)
Quarter: 2014Q4

REPORT INFORMATION
  Report Type: Spontaneous
  Country: None (occurrence: None)
  Receive Date: 20141216
  Receipt Date: 20141216
  Transmission Date: 20150529
  Serious: No
  Sender: FDA-Public Use
  Company Number: None

PATIENT
  Age: 34 Year
  Weight: 63.5 kg

DRUGS (1)
  1. CETIRIZINE [Suspect]
     Active Substance: CETIRIZINE HYDROCHLORIDE
     Indication: SEASONAL ALLERGY
     Dosage: 10MG ONCE DAILY TAKEN BY MOUTH
     Route: 048
     Dates: start: 20140902, end: 20141210

REACTIONS (2)
  - Drug withdrawal syndrome [None]
  - Pruritus [None]
